FAERS Safety Report 5339703-3 (Version None)
Quarter: 2007Q2

REPORT INFORMATION
  Report Type: 
  Country: None (occurrence: None)
  Receive Date: 20070525
  Receipt Date: 20070516
  Transmission Date: 20071010
  Serious: Yes (Death)
  Sender: FDA-Public Use
  Company Number: 16554

PATIENT
  Age: 54 Year
  Sex: Male

DRUGS (10)
  1. CYTARABINE [Suspect]
     Indication: B PRECURSOR TYPE ACUTE LEUKAEMIA
     Dosage: 3 G/M2 BID IV
     Route: 042
  2. METHOTREXATE [Suspect]
     Indication: B PRECURSOR TYPE ACUTE LEUKAEMIA
     Dosage: 1 G/M2 ONCE IV
     Route: 042
  3. DEPOCYT [Suspect]
     Indication: B PRECURSOR TYPE ACUTE LEUKAEMIA
     Dosage: 50 MG FREQ IT
     Route: 037
  4. VINCRISTINE [Concomitant]
  5. CYCLOPHOSPHAMIDE [Concomitant]
  6. DOXORUBICIN HCL [Concomitant]
  7. DEXAMETHASONE 0.5MG TAB [Concomitant]
  8. RITUXIMAB [Concomitant]
  9. NEUPOGEN [Concomitant]
  10. ANTIBIOTICS [Concomitant]

REACTIONS (3)
  - DRUG INTERACTION [None]
  - ENCEPHALITIS [None]
  - NEUROTOXICITY [None]
